FAERS Safety Report 7970455-4 (Version None)
Quarter: 2011Q4

REPORT INFORMATION
  Report Type: 
  Country: None (occurrence: None)
  Receive Date: 20111212
  Receipt Date: 20111201
  Transmission Date: 20120403
  Serious: Yes (Other)
  Sender: FDA-Public Use
  Company Number: PHEH2009US14095

PATIENT
  Sex: Male

DRUGS (7)
  1. EXJADE [Suspect]
     Indication: IRON METABOLISM DISORDER
     Dosage: 1000 MG, DAILY
     Route: 048
     Dates: start: 20090909, end: 20091013
  2. DOXAZOSIN MESYLATE [Concomitant]
  3. TYLENOL PM [Concomitant]
  4. CENTRUM SILVER [Concomitant]
  5. EXJADE [Suspect]
     Dosage: 500 MG, DAILY
     Route: 048
     Dates: start: 20111111
  6. CYCLOPHOSPHAMIDE [Concomitant]
  7. COLACE [Concomitant]

REACTIONS (8)
  - ABDOMINAL DISCOMFORT [None]
  - DYSPNOEA [None]
  - FULL BLOOD COUNT DECREASED [None]
  - BLOOD PRESSURE INCREASED [None]
  - PYREXIA [None]
  - HEADACHE [None]
  - DIARRHOEA [None]
  - FATIGUE [None]
